FAERS Safety Report 5525153-3 (Version None)
Quarter: 2007Q4

REPORT INFORMATION
  Report Type: 
  Country: None (occurrence: None)
  Receive Date: 20071126
  Receipt Date: 20071121
  Transmission Date: 20080405
  Serious: Yes (Hospitalization, Disabling)
  Sender: FDA-Public Use
  Company Number: JP-BRISTOL-MYERS SQUIBB COMPANY-13915822

PATIENT
  Age: 52 Year
  Sex: Female

DRUGS (1)
  1. KENACORT [Suspect]
     Indication: PAROSMIA
     Route: 045
     Dates: start: 20061206, end: 20061206

REACTIONS (3)
  - CHOROIDAL INFARCTION [None]
  - RETINAL ARTERY OCCLUSION [None]
  - VISUAL ACUITY REDUCED [None]
